FAERS Safety Report 6884086-0 (Version None)
Quarter: 2010Q3

REPORT INFORMATION
  Report Type: 
  Country: None (occurrence: None)
  Receive Date: 20100729
  Receipt Date: 20100722
  Transmission Date: 20110219
  Serious: Yes (Other)
  Sender: FDA-Public Use
  Company Number: GB-AMGEN-KDC426390

PATIENT
  Sex: Female

DRUGS (6)
  1. VECTIBIX [Suspect]
     Indication: GASTRIC CANCER
     Dates: start: 20100702
  2. EPIRUBICIN [Suspect]
     Dates: start: 20100702
  3. OXALIPLATIN [Suspect]
     Dates: start: 20100702
  4. VALSARTAN [Concomitant]
  5. LANSOPRAZOLE [Concomitant]
  6. ALENDRONIC ACID [Concomitant]

REACTIONS (1)
  - ANGLE CLOSURE GLAUCOMA [None]
